FAERS Safety Report 4311980-7 (Version None)
Quarter: 2004Q1

REPORT INFORMATION
  Report Type: 
  Country: None (occurrence: None)
  Receive Date: 20040305
  Receipt Date: 20030728
  Transmission Date: 20041129
  Serious: No
  Sender: FDA-Public Use
  Company Number: US-GLAXOSMITHKLINE-A0419192A

PATIENT
  Sex: Male

DRUGS (1)
  1. REQUIP [Suspect]
     Route: 048

REACTIONS (2)
  - CLUMSINESS [None]
  - DISORIENTATION [None]
